FAERS Safety Report 24673970 (Version 1)
Quarter: 2024Q4

REPORT INFORMATION
  Report Type: Spontaneous
  Country: US (occurrence: US)
  Receive Date: 20241128
  Receipt Date: 20241128
  Transmission Date: 20250114
  Serious: No
  Sender: Unknown Manufacturer
  Company Number: US-THERATECHNOLOGIES INC.-2024-THE-TES-000474

PATIENT

DRUGS (1)
  1. EGRIFTA SV [Suspect]
     Active Substance: TESAMORELIN ACETATE
     Indication: Lipodystrophy acquired
     Dosage: 1.4 MG, QD,0.35 ML OF THE RECONSTITUTED SOLUTION INJECTED SUBCUTANEOUSLY ONCE DAILY.
     Route: 058
     Dates: start: 20241021

REACTIONS (2)
  - Limb discomfort [Unknown]
  - Swelling [Unknown]
